FAERS Safety Report 19247939 (Version 1)
Quarter: 2021Q2

REPORT INFORMATION
  Report Type: Spontaneous
  Country: FR (occurrence: FR)
  Receive Date: 20210512
  Receipt Date: 20210512
  Transmission Date: 20210717
  Serious: Yes (Other)
  Sender: FDA-Public Use
  Company Number: FR-009507513-2105FRA001557

PATIENT
  Age: 67 Year
  Sex: Male

DRUGS (2)
  1. CEFTOLOZANE SULFATE  (+) TAZOBACTAM SODIUM [Suspect]
     Active Substance: CEFTOLOZANE SULFATE\TAZOBACTAM SODIUM
     Indication: INTERVERTEBRAL DISCITIS
     Route: 042
  2. CEFTOLOZANE SULFATE  (+) TAZOBACTAM SODIUM [Suspect]
     Active Substance: CEFTOLOZANE SULFATE\TAZOBACTAM SODIUM
     Indication: KLEBSIELLA INFECTION

REACTIONS (2)
  - Off label use [Unknown]
  - Pathogen resistance [Recovered/Resolved]
